FAERS Safety Report 6818323-5 (Version None)
Quarter: 2010Q3

REPORT INFORMATION
  Report Type: 
  Country: None (occurrence: None)
  Receive Date: 20100706
  Receipt Date: 20071026
  Transmission Date: 20110219
  Serious: Yes (Other)
  Sender: FDA-Public Use
  Company Number: US-PFIZER INC-2007090457

PATIENT
  Sex: Male

DRUGS (4)
  1. ZITHROMAX [Suspect]
     Indication: INFLUENZA LIKE ILLNESS
     Dates: start: 20071009, end: 20071001
  2. VITAMIN E [Concomitant]
  3. MULTI-VITAMINS [Concomitant]
  4. FISH OIL [Concomitant]

REACTIONS (1)
  - PANCREATITIS HAEMORRHAGIC [None]
